FAERS Safety Report 6771684-8 (Version None)
Quarter: 2010Q2

REPORT INFORMATION
  Report Type: 
  Country: None (occurrence: None)
  Receive Date: 20100616
  Receipt Date: 20090828
  Transmission Date: 20101027
  Serious: No
  Sender: FDA-Public Use
  Company Number: US-ASTRAZENECA-2007UW04825

PATIENT
  Age: 74 Year
  Sex: Female
  Weight: 81.6 kg

DRUGS (1)
  1. ATACAND [Suspect]
     Indication: HYPERTENSION
     Dosage: 32/12.5
     Route: 048
     Dates: start: 20020101

REACTIONS (1)
  - INTERSTITIAL LUNG DISEASE [None]
